FAERS Safety Report 7885238-3 (Version None)
Quarter: 2011Q4

REPORT INFORMATION
  Report Type: 
  Country: None (occurrence: None)
  Receive Date: 20111102
  Receipt Date: 20111028
  Transmission Date: 20120403
  Serious: Yes (Death)
  Sender: FDA-Public Use
  Company Number: PHHY2011CA71099

PATIENT
  Sex: Female

DRUGS (6)
  1. METHOTREXATE [Concomitant]
     Dosage: 10 MG, QW
     Route: 048
  2. PLAQUENIL [Concomitant]
     Dosage: 200 MG, QD
  3. ZOLEDRONOC ACID [Suspect]
     Indication: OSTEOPOROSIS
     Dosage: ONCE A YEAR INTRAVENOUSLY
     Route: 042
     Dates: start: 20101018
  4. CALCET [Concomitant]
  5. FOLIC ACID [Concomitant]
  6. VITAMIN D [Concomitant]
     Dosage: 1000 IU, DAILY

REACTIONS (1)
  - AORTIC ANEURYSM RUPTURE [None]
